FAERS Safety Report 8382139-1 (Version None)
Quarter: 2012Q2

REPORT INFORMATION
  Report Type: 
  Country: None (occurrence: None)
  Receive Date: 20120524
  Receipt Date: 20120517
  Transmission Date: 20120825
  Serious: Yes (Other)
  Sender: FDA-Public Use
  Company Number: PL-PFIZER INC-2012120087

PATIENT
  Sex: Male

DRUGS (2)
  1. XANAX [Suspect]
     Indication: ANXIETY
     Dosage: HALF A TABLET
  2. XANAX [Suspect]
     Indication: STRESS

REACTIONS (2)
  - FEELING ABNORMAL [None]
  - DRUG DEPENDENCE [None]
